FAERS Safety Report 9207657 (Version 2)
Quarter: 2013Q4

REPORT INFORMATION
  Report Type: Spontaneous
  Country: GB (occurrence: GB)
  Receive Date: 20130403
  Receipt Date: 20131108
  Transmission Date: 20140711
  Serious: Yes (Disabling, Other)
  Sender: FDA-Public Use
  Company Number: GB-ROCHE-1209498

PATIENT
  Age: 48 Year
  Sex: Female
  Weight: 100 kg

DRUGS (7)
  1. NAPROXEN [Suspect]
     Indication: PRODUCT USED FOR UNKNOWN INDICATION
     Route: 065
     Dates: start: 20130227
  2. ADIZEM XL [Concomitant]
     Route: 065
     Dates: start: 20121128
  3. GLYCERYL TRINITRATE [Concomitant]
     Route: 065
     Dates: start: 20120904
  4. NORTRIPTYLINE [Concomitant]
     Route: 065
     Dates: start: 20130102
  5. OMEPRAZOLE [Concomitant]
     Route: 065
     Dates: start: 20121220
  6. PARACETAMOL [Concomitant]
     Route: 065
     Dates: start: 20121220, end: 20130104
  7. TRAMADOL [Concomitant]
     Route: 065
     Dates: start: 20130319

REACTIONS (2)
  - Angina pectoris [Recovered/Resolved]
  - Arteriospasm coronary [Recovered/Resolved]
